FAERS Safety Report 5070572-5 (Version None)
Quarter: 2006Q3

REPORT INFORMATION
  Report Type: 
  Country: None (occurrence: None)
  Receive Date: 20060714
  Receipt Date: 20060421
  Transmission Date: 20061208
  Serious: No
  Sender: FDA-Public Use
  Company Number: 2006SP001781

PATIENT
  Age: 57 Year
  Sex: Male
  Weight: 74.8435 kg

DRUGS (4)
  1. LUNESTA [Suspect]
     Indication: SLEEP DISORDER
     Dosage: 3 MG;HS;ORAL
     Route: 048
     Dates: start: 20050701
  2. TRAZODONE HCL [Concomitant]
  3. BUSPAR [Concomitant]
  4. PROPRANOLOL [Concomitant]

REACTIONS (1)
  - MIDDLE INSOMNIA [None]
